FAERS Safety Report 19197075 (Version 1)
Quarter: 2021Q2

REPORT INFORMATION
  Report Type: Spontaneous
  Country: US (occurrence: US)
  Receive Date: 20210429
  Receipt Date: 20210429
  Transmission Date: 20210717
  Serious: Yes (Other)
  Sender: FDA-Public Use
  Company Number: US-LANNETT COMPANY, INC.-US-2021LAN000144

PATIENT
  Sex: Female

DRUGS (1)
  1. LEVOTHYROXINE SODIUM. [Suspect]
     Active Substance: LEVOTHYROXINE SODIUM
     Indication: THYROID DISORDER
     Dosage: 75 ?G, QD
     Route: 048

REACTIONS (6)
  - Asthenia [Unknown]
  - Drug ineffective [Unknown]
  - Weight increased [Unknown]
  - Dry skin [Unknown]
  - Neoplasm malignant [Unknown]
  - Fatigue [Unknown]

NARRATIVE: CASE EVENT DATE: 2020
